FAERS Safety Report 5729846-4 (Version None)
Quarter: 2008Q2

REPORT INFORMATION
  Report Type: 
  Country: None (occurrence: None)
  Receive Date: 20080501
  Receipt Date: 20080416
  Transmission Date: 20081010
  Serious: Yes (Hospitalization)
  Sender: FDA-Public Use
  Company Number: IDA-00043

PATIENT
  Age: 54 Year
  Sex: Female

DRUGS (6)
  1. AVLOCARDYL: (PROPRANOLOL) STRENGTH(S): 40 MG [Suspect]
     Dosage: PO, FORMULATION: TABL
     Route: 048
  2. IMOVANE: (ZOPICLONE) [Suspect]
     Dosage: PO
     Route: 048
  3. ALPRAZOLAM: STRENGTH(S): 2.5 MG [Suspect]
     Dosage: PO
     Route: 048
  4. LODOZ: (BISOPROLOL, HYDROCHLOROTHIAZIDE) STRENGTH(S): 2.5 MG [Suspect]
     Dosage: PO, FORMULATION:  TABL
     Route: 048
  5. PRAVASTATIN [Concomitant]
  6. STABLON (TIANEPTINE) [Concomitant]

REACTIONS (5)
  - COMA [None]
  - INCORRECT DOSE ADMINISTERED [None]
  - LOSS OF CONSCIOUSNESS [None]
  - POISONING DELIBERATE [None]
  - SUICIDE ATTEMPT [None]
